FAERS Safety Report 18466193 (Version 6)
Quarter: 2021Q2

REPORT INFORMATION
  Report Type: Other
  Country: CA (occurrence: CA)
  Receive Date: 20201104
  Receipt Date: 20210505
  Transmission Date: 20210717
  Serious: No
  Sender: FDA-Public Use
  Company Number: CA-ROCHE-2557077

PATIENT
  Sex: Female
  Weight: 110.32 kg

DRUGS (1)
  1. OCREVUS [Suspect]
     Active Substance: OCRELIZUMAB
     Indication: RELAPSING-REMITTING MULTIPLE SCLEROSIS
     Dosage: 300 MG AT DAY 0 AND 14, THEN 600 MG EVERY 6 MONTH
     Route: 042
     Dates: start: 20200113

REACTIONS (4)
  - Fungal infection [Recovered/Resolved]
  - Morning sickness [Not Recovered/Not Resolved]
  - Maternal exposure before pregnancy [Unknown]
  - Gestational hypertension [Recovered/Resolved]
